FAERS Safety Report 20343427 (Version 1)
Quarter: 2022Q1

REPORT INFORMATION
  Report Type: Spontaneous
  Country: FR (occurrence: FR)
  Receive Date: 20220118
  Receipt Date: 20220118
  Transmission Date: 20220424
  Serious: Yes (Other)
  Sender: FDA-Public Use
  Company Number: FR-CELLTRION INC.-2022FR000215

PATIENT

DRUGS (7)
  1. RITUXIMAB [Suspect]
     Active Substance: RITUXIMAB
     Indication: Autoimmune pancreatitis
     Dosage: 1000 MG EVERY 15 DAYS, RECEIVED 2 INFUSIONS (ADDITIONAL INFO: ADDITIONAL INFO: OFF LABEL USE)
     Route: 041
  2. AZATHIOPRINE [Suspect]
     Active Substance: AZATHIOPRINE
     Indication: Autoimmune pancreatitis
     Dosage: UNK
     Route: 065
  3. AZATHIOPRINE [Suspect]
     Active Substance: AZATHIOPRINE
     Indication: Cholangitis
     Dosage: UNK
  4. METHYLPREDNISOLONE [Concomitant]
     Active Substance: METHYLPREDNISOLONE
     Indication: Premedication
     Dosage: 100 MG
     Route: 065
  5. PREDNISOLONE [Concomitant]
     Active Substance: PREDNISOLONE
     Indication: Cholangitis
     Dosage: ADDITIONAL INFO: ADDITIONAL INFO: ACTION TAKEN: THERAPY TAPERED AND STOPPED AFTER INITIATION OF RITU
  6. PREDNISOLONE [Concomitant]
     Active Substance: PREDNISOLONE
     Indication: Autoimmune pancreatitis
     Dosage: 40 MG, RECEIVED FOUR COURSES
     Route: 065
  7. DEXCHLORPHENIRAMINE [Concomitant]
     Active Substance: DEXCHLORPHENIRAMINE
     Indication: Premedication
     Dosage: 10 MG
     Route: 065

REACTIONS (3)
  - Autoimmune pancreatitis [Unknown]
  - Off label use [Unknown]
  - Treatment failure [Unknown]
